FAERS Safety Report 19459408 (Version 1)
Quarter: 2021Q2

REPORT INFORMATION
  Report Type: Report from Study
  Country: US (occurrence: US)
  Receive Date: 20210624
  Receipt Date: 20210624
  Transmission Date: 20210717
  Serious: Yes (Hospitalization, Other)
  Sender: FDA-Public Use
  Company Number: US-GILEAD-2021-0537873

PATIENT
  Age: 49 Year
  Sex: Female

DRUGS (3)
  1. TYVASO [Suspect]
     Active Substance: TREPROSTINIL
     Indication: PULMONARY ARTERIAL HYPERTENSION
     Dosage: 2.4 ML, QD
     Route: 055
     Dates: start: 20210616
  2. AMBRISENTAN [Suspect]
     Active Substance: AMBRISENTAN
     Indication: PULMONARY ARTERIAL HYPERTENSION
     Dosage: 10 MG, QD
     Route: 065
     Dates: start: 201910
  3. VELETRI [Concomitant]
     Active Substance: EPOPROSTENOL

REACTIONS (2)
  - Ultrasound scan abnormal [Unknown]
  - Syncope [Unknown]

NARRATIVE: CASE EVENT DATE: 20210621
